FAERS Safety Report 7756246-8 (Version None)
Quarter: 2011Q3

REPORT INFORMATION
  Report Type: 
  Country: None (occurrence: None)
  Receive Date: 20110916
  Receipt Date: 20110912
  Transmission Date: 20111222
  Serious: Yes (Hospitalization, Disabling)
  Sender: FDA-Public Use
  Company Number: US-B.I. PHARMACEUTICALS,INC./RIDGEFIELD-2011-BP-16758BP

PATIENT
  Sex: Male

DRUGS (6)
  1. ADVAIR DISKUS 100/50 [Concomitant]
  2. ASPIRIN [Concomitant]
  3. COMBIVENT [Suspect]
     Indication: CHRONIC OBSTRUCTIVE PULMONARY DISEASE
     Dosage: 8 PUF
     Dates: start: 20050101
  4. THEODRINE [Concomitant]
     Dosage: 600 MG
  5. SYNTHROID [Concomitant]
  6. PRILOSEC [Concomitant]
     Dosage: 20 MG

REACTIONS (4)
  - PNEUMONIA [None]
  - DYSPNOEA [None]
  - COUGH [None]
  - PNEUMOTHORAX [None]
